FAERS Safety Report 13248165 (Version 2)
Quarter: 2017Q1

REPORT INFORMATION
  Report Type: Report from Study
  Country: DE (occurrence: DE)
  Receive Date: 20170217
  Receipt Date: 20170316
  Transmission Date: 20170428
  Serious: Yes (Death, Other)
  Sender: FDA-Public Use
  Company Number: DE-GILEAD-2017-0257597

PATIENT
  Age: 63 Year
  Sex: Male
  Weight: 70 kg

DRUGS (11)
  1. MAGNESIUM [Concomitant]
     Active Substance: MAGNESIUM
     Dosage: 200 MG, UNK
  2. OLYSIO [Suspect]
     Active Substance: SIMEPREVIR
     Indication: CHRONIC HEPATITIS C
     Dosage: 150 MG, QD
     Route: 048
     Dates: start: 20141115, end: 20150206
  3. RAMIPRIL. [Concomitant]
     Active Substance: RAMIPRIL
     Dosage: 2.5 MG, UNK
  4. RAMIPRIL COMP HEUMANN [Concomitant]
  5. PENTOXIFYLLIN [Concomitant]
     Active Substance: PENTOXIFYLLINE
     Dosage: 1200 MG, UNK
  6. SOFOSBUVIR [Suspect]
     Active Substance: SOFOSBUVIR
     Indication: CHRONIC HEPATITIS C
     Dosage: 400 MG, QD
     Route: 048
     Dates: start: 20141115, end: 20150206
  7. UDC [Concomitant]
     Dosage: 250 MG, UNK
  8. INSULIN [Concomitant]
     Active Substance: INSULIN NOS
  9. FORTECORTIN                        /00016001/ [Concomitant]
     Active Substance: DEXAMETHASONE
  10. ASA [Concomitant]
     Active Substance: ASPIRIN
     Dosage: 100 MG, UNK
  11. METOHEXAL SUCC [Concomitant]
     Active Substance: METOPROLOL SUCCINATE
     Dosage: 47.5 MG, UNK

REACTIONS (3)
  - Hepatocellular carcinoma [Not Recovered/Not Resolved]
  - Multiple organ dysfunction syndrome [Fatal]
  - Staphylococcal sepsis [Fatal]

NARRATIVE: CASE EVENT DATE: 20160310
